FAERS Safety Report 4492170-4 (Version None)
Quarter: 2004Q4

REPORT INFORMATION
  Report Type: 
  Country: None (occurrence: None)
  Receive Date: 20041103
  Receipt Date: 20041026
  Transmission Date: 20050328
  Serious: Yes (Hospitalization)
  Sender: FDA-Public Use
  Company Number: SE-GLAXOSMITHKLINE-B0349776A

PATIENT
  Age: 69 Year
  Sex: Female

DRUGS (5)
  1. VALTREX [Suspect]
     Indication: HERPES SIMPLEX
     Dates: start: 20040601, end: 20040715
  2. PULMICORT [Concomitant]
     Route: 055
  3. BEHEPAN [Concomitant]
  4. ZYLORIC [Concomitant]
  5. PANTOPRAZOLE SODIUM [Concomitant]

REACTIONS (2)
  - CONFUSIONAL STATE [None]
  - SPEECH DISORDER [None]
